FAERS Safety Report 24085856 (Version 5)
Quarter: 2025Q4

REPORT INFORMATION
  Report Type: Spontaneous
  Country: EU (occurrence: EU)
  Receive Date: 20240712
  Receipt Date: 20251230
  Transmission Date: 20260117
  Serious: Yes (Death, Life-Threatening, Hospitalization)
  Sender: SANDOZ
  Company Number: EU-002147023-NVSC2024DE142708

PATIENT
  Sex: Female

DRUGS (9)
  1. FULVESTRANT [Suspect]
     Active Substance: FULVESTRANT
     Indication: Breast cancer metastatic
     Dosage: 500 MG, QD, (DAILY DOSE,EVERY TWO WEEKS)
     Dates: start: 20201109, end: 20201109
  2. FULVESTRANT [Suspect]
     Active Substance: FULVESTRANT
     Dosage: 500 MG, QD, (DAILY DOSE,EVERY TWO WEEKS)
     Dates: start: 20201210, end: 20240606
  3. RIBOCICLIB [Suspect]
     Active Substance: RIBOCICLIB
     Indication: Hormone receptor positive breast cancer
     Dosage: 600 MG, QD, (SCHEMA 21 DAYS INTAKE, THEN 7 DAYS PAUSE)
     Dates: start: 20201109, end: 20210120
  4. RIBOCICLIB [Suspect]
     Active Substance: RIBOCICLIB
     Indication: Breast cancer metastatic
     Dosage: 200 MG, QD, (SCHEMA 21 DAYS INTAKE, THEN 7 DAYS PAUSE)
     Dates: start: 20210121, end: 20220808
  5. RIBOCICLIB [Suspect]
     Active Substance: RIBOCICLIB
     Dosage: 200 MG, QD, (SCHEMA 21 DAYS INTAKE, THEN 7 DAYS PAUSE)
     Dates: start: 20220816, end: 20240314
  6. RIBOCICLIB [Suspect]
     Active Substance: RIBOCICLIB
     Dosage: 200 MG, QD, (SCHEMA 21 DAYS INTAKE, THEN 7 DAYS PAUSE)
     Dates: start: 20240315, end: 20240619
  7. RIBOCICLIB [Suspect]
     Active Substance: RIBOCICLIB
     Dosage: 200 MG, (SCHEMA 21 DAYS INTAKE, THEN 7 DAYS PAUSE)
  8. FASLODEX [Suspect]
     Active Substance: FULVESTRANT
     Indication: Breast cancer metastatic
     Dosage: 500 MG, QD (DAILY DOSE,EVERY TWO WEEKS)
     Dates: start: 20201109, end: 20201109
  9. FASLODEX [Suspect]
     Active Substance: FULVESTRANT
     Dosage: 500 MG, QD (DAILY DOSE,EVERY TWO WEEKS)
     Dates: start: 20201210, end: 20240606

REACTIONS (4)
  - Chronic kidney disease [Fatal]
  - Acute kidney injury [Fatal]
  - Chronic kidney disease [Fatal]
  - Infection [Unknown]

NARRATIVE: CASE EVENT DATE: 20240601
